FAERS Safety Report 6340610-8 (Version None)
Quarter: 2009Q3

REPORT INFORMATION
  Report Type: 
  Country: None (occurrence: None)
  Receive Date: 20090904
  Receipt Date: 20090825
  Transmission Date: 20100115
  Serious: No
  Sender: FDA-Public Use
  Company Number: US-BAYER-200931002NA

PATIENT
  Age: 34 Year
  Sex: Female

DRUGS (1)
  1. MIRENA [Suspect]
     Indication: CONTRACEPTION
     Dosage: CONTINUOUS
     Route: 015
     Dates: start: 20071001, end: 20090430

REACTIONS (7)
  - HYPOTHYROIDISM [None]
  - LIBIDO DECREASED [None]
  - MALAISE [None]
  - NERVOUSNESS [None]
  - PARAESTHESIA [None]
  - PROCEDURAL PAIN [None]
  - VISUAL IMPAIRMENT [None]
